FAERS Safety Report 10229521 (Version 1)
Quarter: 2014Q2

REPORT INFORMATION
  Report Type: Spontaneous
  Country: US (occurrence: None)
  Receive Date: 20140519
  Receipt Date: 20140519
  Transmission Date: 20141212
  Serious: Yes (Hospitalization)
  Sender: FDA-Public Use
  Company Number: 1826077

PATIENT
  Sex: Male

DRUGS (6)
  1. PROPOFOL [Suspect]
     Indication: PRODUCT USED FOR UNKNOWN INDICATION
  2. PROPOFOL [Suspect]
     Indication: PRODUCT USED FOR UNKNOWN INDICATION
  3. VICODIN [Concomitant]
  4. STOMATOLOGICALS, MOUTH PREPARATIONS [Concomitant]
  5. JANUVIA [Concomitant]
  6. ACTOS [Concomitant]

REACTIONS (3)
  - Injury [None]
  - Poor quality drug administered [None]
  - Product contamination [None]
